FAERS Safety Report 8356951-9 (Version None)
Quarter: 2012Q2

REPORT INFORMATION
  Report Type: 
  Country: None (occurrence: None)
  Receive Date: 20120510
  Receipt Date: 20120501
  Transmission Date: 20120825
  Serious: No
  Sender: FDA-Public Use
  Company Number: 2012SP013901

PATIENT
  Age: 29 Year
  Sex: Male

DRUGS (3)
  1. SINGULAIR [Concomitant]
  2. LAMOTRIGINE [Concomitant]
  3. SAPHRIS [Suspect]
     Indication: BIPOLAR DISORDER
     Dosage: 10 MG;HS
     Dates: start: 20120215, end: 20120329

REACTIONS (2)
  - RASH MACULO-PAPULAR [None]
  - ASTHENIA [None]
